FAERS Safety Report 10046239 (Version 2)
Quarter: 2014Q3

REPORT INFORMATION
  Report Type: Spontaneous
  Country: IT (occurrence: IT)
  Receive Date: 20140331
  Receipt Date: 20140725
  Transmission Date: 20150326
  Serious: Yes (Disabling)
  Sender: FDA-Public Use
  Company Number: IT-009507513-1403ITA010713

PATIENT
  Age: 59 Year
  Sex: Male
  Weight: 65 kg

DRUGS (1)
  1. ONCOTICE [Suspect]
     Active Substance: BACILLUS CALMETTE-GUERIN SUBSTRAIN TICE LIVE ANTIGEN
     Indication: BLADDER CANCER
     Dosage: 50 ML, QM
     Route: 043
     Dates: start: 20120101, end: 20120101

REACTIONS (1)
  - Intervertebral discitis [Recovered/Resolved with Sequelae]

NARRATIVE: CASE EVENT DATE: 20120801
